FAERS Safety Report 11663631 (Version 29)
Quarter: 2021Q4

REPORT INFORMATION
  Report Type: Report from Study
  Country: CA (occurrence: CA)
  Receive Date: 20151027
  Receipt Date: 20211013
  Transmission Date: 20220303
  Serious: Yes (Hospitalization, Other)
  Sender: FDA-Public Use
  Company Number: PHHY2012CA003378

PATIENT
  Age: 51 Year
  Sex: Female

DRUGS (9)
  1. SANDOSTATIN LAR DEPOT [Suspect]
     Active Substance: OCTREOTIDE ACETATE
     Indication: Carcinoid syndrome
     Dosage: 30 MG, BIW (EVERY 2 WEEKS)
     Route: 030
     Dates: start: 20110317
  2. SANDOSTATIN LAR DEPOT [Suspect]
     Active Substance: OCTREOTIDE ACETATE
     Dosage: 30 MG, TIW (EVERY 3 WEEKS)
     Route: 030
     Dates: start: 20111218
  3. SANDOSTATIN LAR DEPOT [Suspect]
     Active Substance: OCTREOTIDE ACETATE
     Dosage: 20 MG, BIW ( EVERY TWO WEEKS)
     Route: 030
     Dates: start: 20140720
  4. SANDOSTATIN LAR DEPOT [Suspect]
     Active Substance: OCTREOTIDE ACETATE
     Dosage: 30 MG, TIW (EVERY 3 WEEK)
     Route: 030
     Dates: start: 20140808
  5. SANDOSTATIN LAR DEPOT [Suspect]
     Active Substance: OCTREOTIDE ACETATE
     Dosage: 30 MG, BIW (EVERY TWO WEEK)
     Route: 030
     Dates: start: 20140903
  6. SANDOSTATIN LAR DEPOT [Suspect]
     Active Substance: OCTREOTIDE ACETATE
     Dosage: 30 MG
     Route: 030
  7. VITAMIN B12 [Concomitant]
     Active Substance: CYANOCOBALAMIN
     Indication: Product used for unknown indication
     Dosage: UNK
     Route: 065
  8. GABAPENTIN [Concomitant]
     Active Substance: GABAPENTIN
     Indication: Product used for unknown indication
     Dosage: 2 DF, QD (EACH EVENING)
     Route: 065
  9. NORTRIPTYLINE [Concomitant]
     Active Substance: NORTRIPTYLINE
     Indication: Product used for unknown indication
     Dosage: UNK
     Route: 065

REACTIONS (37)
  - Ovarian cyst [Unknown]
  - Blood pressure increased [Unknown]
  - Nerve root injury [Unknown]
  - Neuropathy peripheral [Unknown]
  - Flushing [Unknown]
  - Angiolipoma [Unknown]
  - Pain in extremity [Recovering/Resolving]
  - Influenza like illness [Unknown]
  - Malaise [Unknown]
  - Palpitations [Unknown]
  - Vitamin D decreased [Unknown]
  - Skin exfoliation [Unknown]
  - Spinal stenosis [Unknown]
  - Pain [Unknown]
  - Hypoaesthesia [Unknown]
  - Ligamentum flavum hypertrophy [Unknown]
  - Arthropathy [Unknown]
  - Intervertebral disc protrusion [Unknown]
  - Spinal osteoarthritis [Unknown]
  - Mass [Unknown]
  - Back pain [Unknown]
  - Arthralgia [Recovering/Resolving]
  - Fall [Unknown]
  - Limb injury [Unknown]
  - Body temperature decreased [Unknown]
  - Tendon rupture [Unknown]
  - Tendon dislocation [Unknown]
  - Tendonitis [Unknown]
  - Condition aggravated [Not Recovered/Not Resolved]
  - Fatigue [Not Recovered/Not Resolved]
  - Headache [Recovered/Resolved]
  - Nausea [Unknown]
  - Diarrhoea [Unknown]
  - Heart rate increased [Unknown]
  - Headache [Unknown]
  - Injection site mass [Unknown]
  - Inappropriate schedule of product administration [Unknown]

NARRATIVE: CASE EVENT DATE: 20110317
